FAERS Safety Report 6502869-3 (Version None)
Quarter: 2009Q4

REPORT INFORMATION
  Report Type: 
  Country: None (occurrence: None)
  Receive Date: 20091127
  Receipt Date: 20090715
  Transmission Date: 20100525
  Serious: Yes (Other)
  Sender: FDA-Public Use
  Company Number: WAES 0907USA02647

PATIENT
  Age: 74 Year
  Sex: Female
  Weight: 74.8435 kg

DRUGS (8)
  1. FOSAMAX [Suspect]
     Indication: OSTEOPOROSIS
     Dosage: 70 MG/WKY/PO
     Route: 048
     Dates: start: 20040101, end: 20090501
  2. HYZAAR [Concomitant]
  3. LIPITOR [Concomitant]
  4. PROTONIX [Concomitant]
  5. ZETIA [Concomitant]
  6. ASPIRIN [Concomitant]
  7. CALCIUM (UNSPECIFIED) [Concomitant]
  8. VITAMINS (UNSPECIFIED) [Concomitant]

REACTIONS (2)
  - GINGIVITIS [None]
  - OSTEONECROSIS [None]
